FAERS Safety Report 11063215 (Version 1)
Quarter: 2015Q2

REPORT INFORMATION
  Report Type: Spontaneous
  Country: US (occurrence: US)
  Receive Date: 20150424
  Receipt Date: 20150424
  Transmission Date: 20150821
  Serious: No
  Sender: FDA-Public Use
  Company Number: US-ALKERMES INC.-ALK-2014-003479

PATIENT

DRUGS (2)
  1. BACLOFEN. [Concomitant]
     Active Substance: BACLOFEN
     Indication: PRODUCT USED FOR UNKNOWN INDICATION
     Dosage: UNK UNK,
     Route: 030
     Dates: start: 201406
  2. VIVITROL [Suspect]
     Active Substance: NALTREXONE
     Indication: DRUG DEPENDENCE
     Dosage: 380 MG, QMO
     Route: 030
     Dates: start: 20140724

REACTIONS (8)
  - Feeling abnormal [Unknown]
  - Fatigue [Recovering/Resolving]
  - Night sweats [Recovering/Resolving]
  - Restlessness [Recovering/Resolving]
  - Asthenia [Unknown]
  - Insomnia [Recovering/Resolving]
  - Hyperhidrosis [Recovering/Resolving]
  - Acne [Recovering/Resolving]

NARRATIVE: CASE EVENT DATE: 201407
